FAERS Safety Report 5206943-3 (Version None)
Quarter: 2007Q1

REPORT INFORMATION
  Report Type: 
  Country: None (occurrence: None)
  Receive Date: 20070105
  Receipt Date: 20070105
  Transmission Date: 20070707
  Serious: Yes (Other)
  Sender: FDA-Public Use
  Company Number: None

PATIENT
  Age: 40 Year
  Sex: Male

DRUGS (1)
  1. DDAVP (NEEDS NO REFRIGERATION) [Suspect]
     Indication: POLLAKIURIA
     Dosage: 1 TABLET FOUR TIMES DAILY
     Dates: start: 20061205, end: 20061219

REACTIONS (1)
  - DRUG INEFFECTIVE [None]
